FAERS Safety Report 10868552 (Version 1)
Quarter: 2015Q1

REPORT INFORMATION
  Report Type: Spontaneous
  Country: US (occurrence: US)
  Receive Date: 20150225
  Receipt Date: 20150225
  Transmission Date: 20150721
  Serious: Yes (Other)
  Sender: FDA-Public Use
  Company Number: US-ABBVIE-15P-163-1350266-00

PATIENT
  Age: 79 Year
  Sex: Female
  Weight: 42.68 kg

DRUGS (1)
  1. SYNTHROID [Suspect]
     Active Substance: LEVOTHYROXINE SODIUM
     Indication: HYPOTHYROIDISM
     Route: 048
     Dates: start: 1994

REACTIONS (5)
  - Femur fracture [Recovered/Resolved]
  - Lactose intolerance [Not Recovered/Not Resolved]
  - Flatulence [Recovering/Resolving]
  - Blood thyroid stimulating hormone increased [Not Recovered/Not Resolved]
  - Headache [Recovering/Resolving]

NARRATIVE: CASE EVENT DATE: 2007
